FAERS Safety Report 7624910-7 (Version None)
Quarter: 2011Q3

REPORT INFORMATION
  Report Type: 
  Country: None (occurrence: None)
  Receive Date: 20110720
  Receipt Date: 20110708
  Transmission Date: 20111222
  Serious: Yes (Hospitalization, Other)
  Sender: FDA-Public Use
  Company Number: US-AMGEN-USASP2011031648

PATIENT
  Sex: Female

DRUGS (1)
  1. ENBREL [Suspect]
     Indication: RHEUMATOID ARTHRITIS
     Dosage: 50 MG, UNK
     Dates: start: 20090101

REACTIONS (6)
  - OEDEMA PERIPHERAL [None]
  - VOMITING [None]
  - JOINT SWELLING [None]
  - RHEUMATOID ARTHRITIS [None]
  - ACCIDENTAL OVERDOSE [None]
  - PAIN [None]
